FAERS Safety Report 4884957-0 (Version None)
Quarter: 2006Q1

REPORT INFORMATION
  Report Type: 
  Country: None (occurrence: None)
  Receive Date: 20060119
  Receipt Date: 20060116
  Transmission Date: 20060701
  Serious: Yes (Other)
  Sender: FDA-Public Use
  Company Number: JP-JNJFOC-20051205005

PATIENT
  Age: 70 Year

DRUGS (1)
  1. TAVANIC [Suspect]
     Indication: BRONCHITIS
     Route: 048

REACTIONS (2)
  - MUSCLE RUPTURE [None]
  - TENDON DISORDER [None]
